FAERS Safety Report 11655525 (Version 2)
Quarter: 2015Q4

REPORT INFORMATION
  Report Type: Report from Study
  Country: US (occurrence: US)
  Receive Date: 20151023
  Receipt Date: 20151119
  Transmission Date: 20160304
  Serious: No
  Sender: FDA-Public Use
  Company Number: US-GLAXOSMITHKLINE-US2015GSK150164

PATIENT
  Sex: Female
  Weight: 72.56 kg

DRUGS (3)
  1. LAMIVUDINE. [Suspect]
     Active Substance: LAMIVUDINE
     Indication: HIV INFECTION
     Dosage: UNK, U
     Route: 048
     Dates: start: 20150306, end: 20150610
  2. REYATAZ [Suspect]
     Active Substance: ATAZANAVIR SULFATE
     Indication: HIV INFECTION
     Dosage: UNK, 1D
     Route: 048
     Dates: start: 20150306, end: 20150610
  3. ZIDOVUDINE. [Suspect]
     Active Substance: ZIDOVUDINE
     Indication: HIV INFECTION
     Dosage: UNK, U
     Route: 048
     Dates: start: 20150306, end: 20150610

REACTIONS (3)
  - Gastrointestinal disorder [Unknown]
  - Sleep disorder [Unknown]
  - Drug ineffective [Unknown]
